FAERS Safety Report 5614933-1 (Version None)
Quarter: 2008Q1

REPORT INFORMATION
  Report Type: 
  Country: None (occurrence: None)
  Receive Date: 20080204
  Receipt Date: 20080204
  Transmission Date: 20080703
  Serious: Yes (Hospitalization)
  Sender: FDA-Public Use
  Company Number: None

PATIENT
  Sex: Male

DRUGS (8)
  1. PEMETREXED [Suspect]
     Indication: NEOPLASM MALIGNANT
     Dosage: 500 MG/M2 Q 3 WEEKS IV
     Route: 042
     Dates: start: 20080102
  2. BEVACIZUMAB [Suspect]
     Dosage: 15 MG/KG Q 3 WEEKS IV
     Route: 042
     Dates: start: 20080102
  3. LIBRAX [Concomitant]
  4. NEXIUM [Concomitant]
  5. PERCOCET-5 [Concomitant]
  6. AUGMENTIN '250' [Concomitant]
  7. FOLIC ACID [Concomitant]
  8. FENTANYL TRANSDERMAL SYSTEM [Concomitant]

REACTIONS (3)
  - ABSCESS [None]
  - INFECTION [None]
  - NECROSIS [None]
